FAERS Safety Report 25545741 (Version 1)
Quarter: 2025Q3

REPORT INFORMATION
  Report Type: Spontaneous
  Country: EU (occurrence: EU)
  Receive Date: 20250712
  Receipt Date: 20250712
  Transmission Date: 20251021
  Serious: Yes (Death, Other)
  Sender: AMGEN
  Company Number: EU-AMGEN-FRASP2025132793

PATIENT
  Age: 18 Year
  Sex: Female

DRUGS (1)
  1. BEVACIZUMAB [Suspect]
     Active Substance: BEVACIZUMAB
     Indication: Pinealoblastoma
     Dosage: 10 MILLIGRAM/KILOGRAM, Q2WK
     Route: 040

REACTIONS (10)
  - Metastases to meninges [Fatal]
  - Haematotoxicity [Unknown]
  - Pneumocystis jirovecii pneumonia [Unknown]
  - Neurotoxicity [Unknown]
  - Lymphopenia [Unknown]
  - Neutropenia [Unknown]
  - Therapy partial responder [Unknown]
  - Pinealoblastoma [Unknown]
  - Sinusitis [Unknown]
  - Off label use [Unknown]
